FAERS Safety Report 18099545 (Version 1)
Quarter: 2020Q3

REPORT INFORMATION
  Report Type: Report from Study
  Country: US (occurrence: US)
  Receive Date: 20200731
  Receipt Date: 20200731
  Transmission Date: 20201103
  Serious: Yes (Hospitalization)
  Sender: FDA-Public Use
  Company Number: US-MYLANLABS-2020M1068973

PATIENT
  Sex: Female

DRUGS (17)
  1. ACICLOVIR [Suspect]
     Active Substance: ACYCLOVIR
     Indication: STREPTOCOCCAL SEPSIS
  2. EPINEPHRINE. [Suspect]
     Active Substance: EPINEPHRINE
     Indication: STREPTOCOCCAL SEPSIS
  3. AMPICILLIN [Suspect]
     Active Substance: AMPICILLIN
     Indication: SEPTIC SHOCK
     Route: 065
  4. VASOPRESSIN. [Suspect]
     Active Substance: VASOPRESSIN
     Indication: SEPTIC SHOCK
     Route: 065
  5. PLASMA [Concomitant]
     Active Substance: HUMAN PLASMA
     Indication: MULTIPLE ORGAN DYSFUNCTION SYNDROME
  6. ACICLOVIR [Suspect]
     Active Substance: ACYCLOVIR
     Indication: SEPTIC SHOCK
     Dosage: UNK
     Route: 065
  7. EPINEPHRINE. [Suspect]
     Active Substance: EPINEPHRINE
     Indication: SEPTIC SHOCK
     Route: 065
  8. VASOPRESSIN. [Suspect]
     Active Substance: VASOPRESSIN
     Indication: STREPTOCOCCAL SEPSIS
  9. AMPICILLIN [Suspect]
     Active Substance: AMPICILLIN
     Indication: STREPTOCOCCAL SEPSIS
  10. CALCIUM CHLORIDE. [Concomitant]
     Active Substance: CALCIUM CHLORIDE
     Indication: PROPHYLAXIS
     Route: 065
  11. PLASMA [Concomitant]
     Active Substance: HUMAN PLASMA
     Indication: SEPTIC SHOCK
     Route: 065
  12. DOPAMINE [Suspect]
     Active Substance: DOPAMINE HYDROCHLORIDE
     Indication: SEPTIC SHOCK
     Route: 065
  13. DOPAMINE [Suspect]
     Active Substance: DOPAMINE HYDROCHLORIDE
     Indication: STREPTOCOCCAL SEPSIS
  14. GENTAMICIN. [Suspect]
     Active Substance: GENTAMICIN
     Indication: STREPTOCOCCAL SEPSIS
  15. PLASMA [Concomitant]
     Active Substance: HUMAN PLASMA
     Indication: ACIDOSIS
  16. PLASMA [Concomitant]
     Active Substance: HUMAN PLASMA
     Indication: STREPTOCOCCAL SEPSIS
  17. GENTAMICIN. [Suspect]
     Active Substance: GENTAMICIN
     Indication: SEPTIC SHOCK
     Route: 065

REACTIONS (2)
  - Drug ineffective [Unknown]
  - Off label use [Unknown]
